FAERS Safety Report 9349024 (Version 1)
Quarter: 2013Q2

REPORT INFORMATION
  Report Type: Spontaneous
  Country: IN (occurrence: IN)
  Receive Date: 20130614
  Receipt Date: 20130614
  Transmission Date: 20140414
  Serious: Yes (Hospitalization)
  Sender: FDA-Public Use
  Company Number: IN-ROCHE-1236581

PATIENT
  Age: 61 Year
  Sex: Male
  Weight: 62 kg

DRUGS (8)
  1. METALYSE [Suspect]
     Indication: MYOCARDIAL INFARCTION
     Route: 042
     Dates: start: 20130422, end: 20130422
  2. FRAGMIN [Concomitant]
  3. ACETYLSALICYLIC ACID [Concomitant]
  4. CLOPITAB [Concomitant]
  5. RANTAC [Concomitant]
  6. MORPHIN HCL [Concomitant]
  7. EFCORLIN [Concomitant]
  8. DOPAMINE [Concomitant]

REACTIONS (2)
  - Electrocardiogram ST segment abnormal [Recovered/Resolved]
  - Chest pain [Recovered/Resolved]
